FAERS Safety Report 13448157 (Version 3)
Quarter: 2018Q1

REPORT INFORMATION
  Report Type: Spontaneous
  Country: CA (occurrence: CA)
  Receive Date: 20170417
  Receipt Date: 20180208
  Transmission Date: 20180508
  Serious: Yes (Other)
  Sender: FDA-Public Use
  Company Number: CA-CELLTRION INC.-2017CA004471

PATIENT

DRUGS (22)
  1. METOCLOPRAMIDE. [Concomitant]
     Active Substance: METOCLOPRAMIDE
     Dosage: 5 MG, CYCLIC (EVERY 4-6 HOURS)
  2. METOCLOPRAMIDE. [Concomitant]
     Active Substance: METOCLOPRAMIDE
     Dosage: 5-10 MG (1-2 ML) EVERY 4 TO 6 HOURS, AS NEEDED
  3. METOCLOPRAMIDE. [Concomitant]
     Active Substance: METOCLOPRAMIDE
     Dosage: 5-10 MG (1-2 ML) EVERY 4 TO 6 HOURS, AS NEEDED
  4. LEVOTHYROXINE. [Concomitant]
     Active Substance: LEVOTHYROXINE
     Dosage: 88 UG, DAILY
  5. CEPHALEXIN                         /00145501/ [Concomitant]
     Active Substance: CEPHALEXIN
     Dosage: 5 MG, QID
  6. DALTEPARIN [Concomitant]
     Active Substance: DALTEPARIN
     Dosage: 5000 UNIT/0.2ML (DAILY) AT 1400
  7. METHYLPREDNISOLONE SODIUM SUCCINATE. [Concomitant]
     Active Substance: METHYLPREDNISOLONE SODIUM SUCCINATE
     Dosage: 30 MG (0.48ML) - EVERY 12 HOURS
  8. HEPARIN [Concomitant]
     Active Substance: HEPARIN SODIUM
     Dosage: UNK
     Dates: start: 20170318, end: 20170325
  9. INFLECTRA [Suspect]
     Active Substance: INFLIXIMAB-DYYB
     Indication: COLITIS ULCERATIVE
     Dosage: 400 MG (5MG/KG) , CYCLIC (EVERY 2, 6 WEEKS THEN EVERY 8 WEEKS FOR 12 MONTHS)
     Route: 042
     Dates: start: 20170318
  10. QUTIAPINE [Concomitant]
     Indication: INSOMNIA
     Dosage: UNK UNK, PRN
     Route: 048
  11. INFLECTRA [Suspect]
     Active Substance: INFLIXIMAB-DYYB
     Dosage: 699 MG ,10 MG/KGS (EVERY 2, 6 WEEKS , THEN EVERY 8 WEEKS FOR 12 MONTHS)
     Route: 042
     Dates: start: 20170324
  12. METOCLOPRAMIDE. [Concomitant]
     Active Substance: METOCLOPRAMIDE
     Dosage: 5-10 MG (1-2 ML) EVERY 4 TO 6 HOURS, AS NEEDED
  13. METOPROLOL. [Concomitant]
     Active Substance: METOPROLOL
     Dosage: UNK
  14. BISOPROLOL [Concomitant]
     Active Substance: BISOPROLOL
     Dosage: 5 MG, 1X/DAY
  15. TYLENOL [Concomitant]
     Active Substance: ACETAMINOPHEN
     Dosage: 325-650 MG (EVERY 4-6 HOURS, AS NEEDED)
  16. ALTEPLASE. [Concomitant]
     Active Substance: ALTEPLASE
     Dosage: 2 MG, AS NEEDED (VIA CATHETER)
  17. ATIVAN [Concomitant]
     Active Substance: LORAZEPAM
     Dosage: 0.5 MG-1MG
     Route: 060
  18. QUTIAPINE [Concomitant]
     Indication: AGITATION
     Dosage: UNK
  19. RIVAROXABAN [Concomitant]
     Active Substance: RIVAROXABAN
     Dosage: 20 MG, (DAILY, AS NEEDED)
     Dates: start: 20170318, end: 20170318
  20. PREDNISONE. [Concomitant]
     Active Substance: PREDNISONE
     Dosage: 40 MG, DAILY
     Dates: start: 20170329
  21. ALUMINIUM-MAGNESIUM HYDROXIDE [Concomitant]
     Dosage: 15-30 ML (EVERY 4 HOURS, AS NEEDED)
  22. TYLENOL [Concomitant]
     Active Substance: ACETAMINOPHEN
     Dosage: 325-650 MG (EVERY 4-6 HOURS, AS NEEDED)

REACTIONS (7)
  - White blood cell count increased [Not Recovered/Not Resolved]
  - Hypotension [Unknown]
  - C-reactive protein increased [Unknown]
  - Frequent bowel movements [Not Recovered/Not Resolved]
  - Drug ineffective [Unknown]
  - Off label use [Unknown]
  - Platelet count decreased [Not Recovered/Not Resolved]

NARRATIVE: CASE EVENT DATE: 20170320
